FAERS Safety Report 4853770-2 (Version None)
Quarter: 2005Q4

REPORT INFORMATION
  Report Type: 
  Country: None (occurrence: None)
  Receive Date: 20051212
  Receipt Date: 20051130
  Transmission Date: 20060501
  Serious: Yes (Hospitalization, Other)
  Sender: FDA-Public Use
  Company Number: 2005157889

PATIENT
  Sex: Female

DRUGS (3)
  1. ZOLOFT [Suspect]
     Indication: ILL-DEFINED DISORDER
     Dosage: 25 MG (1 IN 1 D)
     Dates: end: 20050901
  2. CIPRO [Suspect]
     Indication: ILL-DEFINED DISORDER
  3. ATIVAN [Suspect]
     Indication: HYPERSENSITIVITY

REACTIONS (7)
  - ABDOMINAL PAIN [None]
  - DIVERTICULITIS [None]
  - DRUG DEPENDENCE [None]
  - DRUG HYPERSENSITIVITY [None]
  - DRY MOUTH [None]
  - FATIGUE [None]
  - OESOPHAGEAL PAIN [None]
